FAERS Safety Report 5209966-3 (Version None)
Quarter: 2006Q4

REPORT INFORMATION
  Report Type: 
  Country: None (occurrence: None)
  Receive Date: 20061129
  Receipt Date: 20051010
  Transmission Date: 20070319
  Serious: No
  Sender: FDA-Public Use
  Company Number: 2005UW15116

PATIENT
  Age: 56 Year
  Sex: Female

DRUGS (1)
  1. LISINOPRIL [Suspect]

REACTIONS (9)
  - BLOOD PRESSURE DECREASED [None]
  - CHOKING SENSATION [None]
  - DIARRHOEA [None]
  - HEART RATE INCREASED [None]
  - HYPERHIDROSIS [None]
  - NAUSEA [None]
  - RASH [None]
  - SWELLING FACE [None]
  - VOMITING [None]
